FAERS Safety Report 8512246 (Version 2)
Quarter: 2013Q1

REPORT INFORMATION
  Report Type: Spontaneous
  Country: US (occurrence: US)
  Receive Date: 20120413
  Receipt Date: 20130325
  Transmission Date: 20140127
  Serious: Yes (Hospitalization)
  Sender: FDA-Public Use
  Company Number: US-ASTRAZENECA-2011SE70968

PATIENT
  Age: 67 Year
  Sex: Female

DRUGS (17)
  1. NEXIUM [Suspect]
     Indication: GASTROOESOPHAGEAL REFLUX DISEASE
     Route: 048
  2. NEXIUM [Suspect]
     Indication: GASTROOESOPHAGEAL REFLUX DISEASE
     Route: 048
  3. LISINOPRIL [Suspect]
     Route: 048
  4. OVER THE COUNTER MEDICATION [Suspect]
  5. CLARITIN [Concomitant]
  6. ADVAIR DISKUS [Concomitant]
     Dosage: 250-50 MG PUFF TWO TIMES DAILY
  7. VENLAFAXINE HYDROCHLORIDE [Concomitant]
  8. OXYBUTININ [Concomitant]
  9. BAMATIC FUSION [Concomitant]
  10. VITAMIN B12 [Concomitant]
  11. BIOTIN [Concomitant]
  12. NORVASC [Concomitant]
  13. LYRICA [Concomitant]
  14. VENTOLIN HFA [Concomitant]
     Indication: WHEEZING
     Dosage: 108 MCG (90) BASE 1-2 PUFFS 24 HRS PRN
  15. NASONEX [Concomitant]
  16. ABILIFY [Concomitant]
     Dosage: 2 MG + 10 MG PRN EVEREY DAY
  17. PLAVIX [Concomitant]
     Dates: start: 20130115

REACTIONS (8)
  - Peripheral artery aneurysm [Unknown]
  - Asthma [Unknown]
  - Dyspepsia [Unknown]
  - Swollen tongue [Unknown]
  - Rash [Unknown]
  - Urticaria [Unknown]
  - Intentional drug misuse [Unknown]
  - Off label use [Unknown]
